FAERS Safety Report 9202423 (Version 1)
Quarter: 2013Q1

REPORT INFORMATION
  Report Type: Spontaneous
  Country: US (occurrence: None)
  Receive Date: 20130329
  Receipt Date: 20130329
  Transmission Date: 20140127
  Serious: No
  Sender: FDA-Public Use
  Company Number: None

PATIENT
  Age: 66 Year
  Sex: Female
  Weight: 52.16 kg

DRUGS (1)
  1. BONIVA (IBANDRONATE SODIUM) [Suspect]
     Indication: OSTEOPOROSIS
     Dosage: 150 MG ONCE A MONTH?01/05/13 (ONE TIME)
     Dates: start: 20130105

REACTIONS (7)
  - Influenza like illness [None]
  - Myalgia [None]
  - Arthralgia [None]
  - Pruritus generalised [None]
  - Gingival swelling [None]
  - Gingival bleeding [None]
  - Pain in jaw [None]
